FAERS Safety Report 5674040-9 (Version None)
Quarter: 2008Q1

REPORT INFORMATION
  Report Type: 
  Country: None (occurrence: None)
  Receive Date: 20080319
  Receipt Date: 20080319
  Transmission Date: 20080703
  Serious: No
  Sender: FDA-Public Use
  Company Number: None

PATIENT
  Sex: Female
  Weight: 88.5195 kg

DRUGS (2)
  1. NADOLOL [Suspect]
     Indication: HYPERTENSION
     Dosage: 20MG BID PO
     Route: 048
     Dates: start: 20060701
  2. NADOLOL [Suspect]
     Indication: HYPERTENSION
     Dosage: 20MG BID PO
     Route: 048
     Dates: start: 20070101

REACTIONS (5)
  - BLOOD PRESSURE INCREASED [None]
  - HEADACHE [None]
  - HEART RATE INCREASED [None]
  - HYPOAESTHESIA ORAL [None]
  - NERVOUSNESS [None]
